FAERS Safety Report 20705698 (Version 1)
Quarter: 2022Q2

REPORT INFORMATION
  Report Type: Spontaneous
  Country: US (occurrence: None)
  Receive Date: 20220412
  Receipt Date: 20220412
  Transmission Date: 20220721
  Serious: Yes (Life-Threatening)
  Sender: FDA-Public Use
  Company Number: None

PATIENT
  Age: 35 Year
  Sex: Female
  Weight: 54 kg

DRUGS (1)
  1. DROPERIDOL [Suspect]
     Active Substance: DROPERIDOL
     Indication: Migraine
     Dates: start: 20220412, end: 20220412

REACTIONS (11)
  - Dysphoria [None]
  - Agitation [None]
  - Screaming [None]
  - Panic reaction [None]
  - Suicidal behaviour [None]
  - Muscle contractions involuntary [None]
  - Sedation [None]
  - Seizure [None]
  - Heart rate increased [None]
  - Dyspnoea [None]
  - Restlessness [None]

NARRATIVE: CASE EVENT DATE: 20220412
